FAERS Safety Report 18731332 (Version 5)
Quarter: 2021Q2

REPORT INFORMATION
  Report Type: Other
  Country: US (occurrence: US)
  Receive Date: 20210112
  Receipt Date: 20210517
  Transmission Date: 20210717
  Serious: Yes (Hospitalization, Other)
  Sender: FDA-Public Use
  Company Number: US-ROCHE-2746998

PATIENT
  Age: 68 Year
  Sex: Male

DRUGS (21)
  1. DELTASONE [Concomitant]
     Active Substance: PREDNISONE
     Route: 048
  2. BACTRIM DS [Concomitant]
     Active Substance: SULFAMETHOXAZOLE\TRIMETHOPRIM
     Dosage: 800?160 MG PER TABLET
     Route: 048
  3. CELLCEPT [Suspect]
     Active Substance: MYCOPHENOLATE MOFETIL\MYCOPHENOLATE MOFETIL HYDROCHLORIDE
     Indication: LUNG TRANSPLANT
     Route: 048
     Dates: start: 2019, end: 202012
  4. CELLCEPT [Suspect]
     Active Substance: MYCOPHENOLATE MOFETIL\MYCOPHENOLATE MOFETIL HYDROCHLORIDE
     Route: 048
     Dates: start: 202012, end: 20210111
  5. ASCORBIC ACID. [Concomitant]
     Active Substance: ASCORBIC ACID
     Route: 048
  6. ASPIRIN. [Concomitant]
     Active Substance: ASPIRIN
     Route: 048
  7. MAGNESIUM OXIDE. [Concomitant]
     Active Substance: MAGNESIUM OXIDE
     Dosage: 3 TABLETS AT NOON AND 2 TABLETS IN THE EVENING
     Route: 048
  8. PRILOSEC [Concomitant]
     Active Substance: OMEPRAZOLE MAGNESIUM
     Route: 048
  9. VALCYTE [Suspect]
     Active Substance: VALGANCICLOVIR HYDROCHLORIDE
     Indication: LUNG TRANSPLANT
     Dosage: 450MG TABLET
     Route: 048
     Dates: start: 20190823, end: 20210226
  10. MELATONIN [Concomitant]
     Active Substance: MELATONIN
     Route: 048
  11. FLOMAX [Concomitant]
     Active Substance: TAMSULOSIN HYDROCHLORIDE
     Route: 048
  12. ENVARSUS XR [Concomitant]
     Active Substance: TACROLIMUS
     Dates: start: 20201105
  13. AMLODIPINE [Concomitant]
     Active Substance: AMLODIPINE BESYLATE
     Route: 048
  14. ATORVASTATIN [Concomitant]
     Active Substance: ATORVASTATIN
     Route: 048
  15. INSULIN [Concomitant]
     Active Substance: INSULIN NOS
  16. DITROPAN XL [Concomitant]
     Active Substance: OXYBUTYNIN CHLORIDE
     Route: 048
  17. ENVARSUS XR [Concomitant]
     Active Substance: TACROLIMUS
     Route: 048
  18. ENVARSUS XR [Concomitant]
     Active Substance: TACROLIMUS
     Route: 048
  19. ULTRAM [Concomitant]
     Active Substance: TRAMADOL HYDROCHLORIDE
     Route: 048
  20. LOSARTAN. [Concomitant]
     Active Substance: LOSARTAN
     Route: 048
  21. METOPROLOL SUCCINATE. [Concomitant]
     Active Substance: METOPROLOL SUCCINATE
     Route: 048

REACTIONS (11)
  - Overweight [Recovering/Resolving]
  - Spirometry abnormal [Recovering/Resolving]
  - Back pain [Not Recovered/Not Resolved]
  - Sleep apnoea syndrome [Recovering/Resolving]
  - Nocturia [Recovered/Resolved]
  - Weight increased [Recovering/Resolving]
  - Gastrointestinal disorder [Unknown]
  - Cytomegalovirus test positive [Recovered/Resolved]
  - Off label use [Unknown]
  - Hiatus hernia [Recovered/Resolved]
  - Leukopenia [Recovering/Resolving]

NARRATIVE: CASE EVENT DATE: 2019
